FAERS Safety Report 9681452 (Version 1)
Quarter: 2013Q4

REPORT INFORMATION
  Report Type: Spontaneous
  Country: US (occurrence: US)
  Receive Date: 20131111
  Receipt Date: 20131111
  Transmission Date: 20140711
  Serious: No
  Sender: FDA-Public Use
  Company Number: US-TEVA-415930USA

PATIENT
  Sex: Female

DRUGS (2)
  1. LOSEASONIQUE [Suspect]
     Indication: HORMONE REPLACEMENT THERAPY
     Route: 048
     Dates: start: 201107
  2. LOSEASONIQUE [Suspect]
     Indication: MENOPAUSAL SYMPTOMS

REACTIONS (2)
  - Visual impairment [Recovered/Resolved]
  - Visual field defect [Recovered/Resolved]
